FAERS Safety Report 22007174 (Version 1)
Quarter: 2023Q1

REPORT INFORMATION
  Report Type: Spontaneous
  Country: CN (occurrence: CN)
  Receive Date: 20230217
  Receipt Date: 20230217
  Transmission Date: 20230418
  Serious: Yes (Other)
  Sender: FDA-Public Use
  Company Number: CN-009507513-2302CHN003656

PATIENT
  Age: 28 Year

DRUGS (1)
  1. IMIPENEM AND CILASTATIN [Suspect]
     Active Substance: CILASTATIN SODIUM\IMIPENEM
     Dosage: UNK

REACTIONS (3)
  - Syncope [Unknown]
  - Muscle spasms [Unknown]
  - Confusional state [Unknown]
